FAERS Safety Report 9006374 (Version 1)
Quarter: 2012Q4

REPORT INFORMATION
  Report Type: Spontaneous
  Country: DK (occurrence: None)
  Receive Date: 20121227
  Receipt Date: 20121227
  Transmission Date: 20130627
  Serious: Yes (Death, Life-Threatening, Hospitalization)
  Sender: FDA-Public Use
  Company Number: 2012MA014229

PATIENT
  Age: 30 Year
  Sex: Female

DRUGS (10)
  1. IRINOTECAN HYDROCHLORIDE [Suspect]
     Indication: MALIGNANT GLIOMA
     Route: 042
     Dates: start: 20071011, end: 20081030
  2. BEVACIZUMAB [Suspect]
     Indication: MALIGNANT GLIOMA
     Route: 042
     Dates: start: 20071011, end: 20081030
  3. CETUXIMAB [Suspect]
     Indication: MALIGNANT GLIOMA
     Route: 042
     Dates: start: 20071011, end: 20081030
  4. OXYNORM [Concomitant]
     Indication: MALIGNANT GLIOMA
  5. MORPHINE [Concomitant]
  6. IRON [Concomitant]
  7. FRAGMIN [Concomitant]
  8. PANODIL [Concomitant]
  9. OXYCONTIN [Concomitant]
  10. MULTIVITAMIN [Concomitant]

REACTIONS (5)
  - Cerebral infarction [None]
  - Respiratory distress [None]
  - Erysipelas [None]
  - Fall [None]
  - Femoral neck fracture [None]
